FAERS Safety Report 5106571-4 (Version None)
Quarter: 2006Q3

REPORT INFORMATION
  Report Type: 
  Country: None (occurrence: None)
  Receive Date: 20060918
  Receipt Date: 20060913
  Transmission Date: 20061208
  Serious: Yes (Hospitalization)
  Sender: FDA-Public Use
  Company Number: DE-GLAXOSMITHKLINE-D0050880A

PATIENT
  Sex: Male

DRUGS (2)
  1. AVANDIA [Suspect]
     Indication: DIABETES MELLITUS
     Route: 048
     Dates: start: 20050101
  2. RED BLOOD CELLS [Concomitant]
     Indication: HEREDITARY HAEMORRHAGIC TELANGIECTASIA
     Route: 065

REACTIONS (2)
  - HYPERAMMONAEMIA [None]
  - STUPOR [None]
